FAERS Safety Report 10243129 (Version 2)
Quarter: 2015Q1

REPORT INFORMATION
  Report Type: Spontaneous
  Country: US (occurrence: None)
  Receive Date: 20140616
  Receipt Date: 20150320
  Transmission Date: 20150720
  Serious: Yes (Death, Other)
  Sender: FDA-Public Use
  Company Number: UNT-2014-001895

PATIENT
  Age: 51 Year
  Sex: Female

DRUGS (2)
  1. VELETRI (EPOPROSTENOL SODIUM) [Concomitant]
     Active Substance: EPOPROSTENOL SODIUM
  2. REMODULIN [Suspect]
     Active Substance: TREPROSTINIL
     Indication: PULMONARY ARTERIAL HYPERTENSION
     Route: 058
     Dates: start: 20130214

REACTIONS (4)
  - Right ventricular failure [None]
  - Pulmonary hypertension [None]
  - Ischaemic cardiomyopathy [None]
  - Cardiac arrest [None]
